FAERS Safety Report 6523844-9 (Version None)
Quarter: 2009Q4

REPORT INFORMATION
  Report Type: 
  Country: None (occurrence: None)
  Receive Date: 20091230
  Receipt Date: 20091230
  Transmission Date: 20100525
  Serious: No
  Sender: FDA-Public Use
  Company Number: None

PATIENT
  Sex: Male

DRUGS (1)
  1. COLD REMEDY NASAL GEL [Suspect]
     Dosage: EARLY 2006
     Dates: start: 20051201, end: 20060101

REACTIONS (2)
  - AGEUSIA [None]
  - ANOSMIA [None]
